FAERS Safety Report 18488422 (Version 3)
Quarter: 2020Q4

REPORT INFORMATION
  Report Type: Spontaneous
  Country: US (occurrence: US)
  Receive Date: 20201110
  Receipt Date: 20201218
  Transmission Date: 20210114
  Serious: Yes (Death)
  Sender: FDA-Public Use
  Company Number: US-CELLTRION INC.-2020US031156

PATIENT

DRUGS (1)
  1. INFLECTRA [Suspect]
     Active Substance: INFLIXIMAB-DYYB
     Indication: IMMUNE-MEDIATED ENTEROCOLITIS
     Dosage: 9-100MG VIALS DISPENSED EVERY 28 DAYS-FURTHER DETAILS UNKNOWN.
     Route: 042
     Dates: start: 202008, end: 202010

REACTIONS (3)
  - Off label use [Unknown]
  - Death [Fatal]
  - Unevaluable event [Fatal]
